FAERS Safety Report 12143137 (Version 4)
Quarter: 2016Q2

REPORT INFORMATION
  Report Type: Report from Study
  Country: DE (occurrence: DE)
  Receive Date: 20160303
  Receipt Date: 20160414
  Transmission Date: 20160815
  Serious: Yes (Hospitalization)
  Sender: FDA-Public Use
  Company Number: DE-AMGEN-DEUCT2016025383

PATIENT
  Age: 48 Year
  Sex: Female
  Weight: 77 kg

DRUGS (3)
  1. TALIMOGENE LAHERPAREPVEC [Suspect]
     Active Substance: TALIMOGENE LAHERPAREPVEC
     Indication: MALIGNANT MELANOMA
     Dosage: 0.9 ML, UNK
     Route: 026
     Dates: start: 20151201
  2. EMLA [Concomitant]
     Active Substance: LIDOCAINE\PRILOCAINE
     Dosage: 2 MG, UNK
     Route: 061
     Dates: start: 20151201
  3. PARACETAMOL [Concomitant]
     Active Substance: ACETAMINOPHEN
     Dosage: 500 MG, UNK
     Route: 048
     Dates: start: 20151222, end: 20160107

REACTIONS (1)
  - Medical observation [Recovered/Resolved]

NARRATIVE: CASE EVENT DATE: 20160209
